FAERS Safety Report 7554336-6 (Version None)
Quarter: 2011Q2

REPORT INFORMATION
  Report Type: 
  Country: None (occurrence: None)
  Receive Date: 20110617
  Receipt Date: 20110607
  Transmission Date: 20111010
  Serious: Yes (Hospitalization, Other)
  Sender: FDA-Public Use
  Company Number: US-ROCHE-727278

PATIENT
  Sex: Female
  Weight: 68.9 kg

DRUGS (2)
  1. ASPIRIN [Concomitant]
  2. ACCUTANE [Suspect]
     Indication: ACNE
     Route: 065
     Dates: start: 20000101, end: 20010601

REACTIONS (7)
  - INFLAMMATORY BOWEL DISEASE [None]
  - ANAEMIA [None]
  - HAEMORRHOIDS [None]
  - GASTROINTESTINAL INJURY [None]
  - COLONIC POLYP [None]
  - COLITIS ULCERATIVE [None]
  - DYSPEPSIA [None]
